FAERS Safety Report 23181625 (Version 2)
Quarter: 2023Q4

REPORT INFORMATION
  Report Type: Report from Study
  Country: IL (occurrence: IL)
  Receive Date: 20231114
  Receipt Date: 20231130
  Transmission Date: 20240109
  Serious: Yes (Other)
  Sender: FDA-Public Use
  Company Number: IL-SA-SAC20230808000479

PATIENT
  Age: 57 Year
  Sex: Female

DRUGS (6)
  1. ISATUXIMAB [Suspect]
     Active Substance: ISATUXIMAB
     Indication: Plasma cell myeloma refractory
     Dosage: 10 MG/KG
     Route: 065
     Dates: start: 20230802
  2. DEXAMETHASONE [Suspect]
     Active Substance: DEXAMETHASONE
     Dosage: UNK
     Dates: start: 20230802
  3. POMALIDOMIDE [Suspect]
     Active Substance: POMALIDOMIDE
     Dosage: UNK
     Dates: start: 20230802
  4. VORICONAZOLE [Concomitant]
     Active Substance: VORICONAZOLE
  5. POMALIDOMIDE [Concomitant]
     Active Substance: POMALIDOMIDE
  6. ACYCLOVIR [Concomitant]
     Active Substance: ACYCLOVIR

REACTIONS (4)
  - JC virus infection [Unknown]
  - Body temperature increased [Unknown]
  - Productive cough [Unknown]
  - Chills [Unknown]

NARRATIVE: CASE EVENT DATE: 20230802
